FAERS Safety Report 5271019-6 (Version None)
Quarter: 2007Q1

REPORT INFORMATION
  Report Type: 
  Country: None (occurrence: None)
  Receive Date: 20061214
  Receipt Date: 20060511
  Transmission Date: 20070707
  Serious: Yes (Other)
  Sender: FDA-Public Use
  Company Number: 2005142914

PATIENT
  Age: 46 Year
  Sex: Female
  Weight: 61.2356 kg

DRUGS (10)
  1. BEXTRA [Suspect]
     Indication: LIMB INJURY
     Dosage: 20 MG (10 MG, 2 IN 1 D)
     Dates: start: 20041217, end: 20050412
  2. MORPHINE SULFATE [Concomitant]
  3. CLONIDINE [Concomitant]
  4. FLUOXETINE [Concomitant]
  5. TRAZODONE HCL [Concomitant]
  6. AMBIEN [Concomitant]
  7. HYDROCHLOROTHIAZIDE [Concomitant]
  8. COMPAZINE [Concomitant]
  9. NORVASC [Concomitant]
  10. LOTENSIN [Concomitant]

REACTIONS (1)
  - MYOCARDIAL INFARCTION [None]
